FAERS Safety Report 8182576-4 (Version None)
Quarter: 2012Q1

REPORT INFORMATION
  Report Type: 
  Country: None (occurrence: None)
  Receive Date: 20120305
  Receipt Date: 20120223
  Transmission Date: 20120608
  Serious: No
  Sender: FDA-Public Use
  Company Number: US-BIOGENIDEC-2012BI007047

PATIENT
  Age: 55 Year
  Sex: Female

DRUGS (2)
  1. AVONEX [Suspect]
     Indication: MULTIPLE SCLEROSIS
     Route: 030
  2. AVONEX [Suspect]
     Route: 030
     Dates: start: 20120113

REACTIONS (5)
  - INFLUENZA LIKE ILLNESS [None]
  - GAIT DISTURBANCE [None]
  - CHILLS [None]
  - PAIN IN EXTREMITY [None]
  - INSOMNIA [None]
